FAERS Safety Report 8235154-2 (Version None)
Quarter: 2012Q1

REPORT INFORMATION
  Report Type: 
  Country: None (occurrence: None)
  Receive Date: 20120326
  Receipt Date: 20120316
  Transmission Date: 20120608
  Serious: Yes (Other)
  Sender: FDA-Public Use
  Company Number: US-ASTRAZENECA-2010SE52924

PATIENT
  Age: 84 Year
  Sex: Female

DRUGS (2)
  1. ZANTAC [Concomitant]
  2. NEXIUM [Suspect]
     Route: 048

REACTIONS (13)
  - WRIST FRACTURE [None]
  - APHAGIA [None]
  - VERTIGO [None]
  - OCULAR HYPERAEMIA [None]
  - VISUAL IMPAIRMENT [None]
  - ABDOMINAL DISCOMFORT [None]
  - MACULAR DEGENERATION [None]
  - DRUG DOSE OMISSION [None]
  - FALL [None]
  - EYE IRRITATION [None]
  - VOMITING [None]
  - BALANCE DISORDER [None]
  - UPPER LIMB FRACTURE [None]
